FAERS Safety Report 18705145 (Version 1)
Quarter: 2021Q1

REPORT INFORMATION
  Report Type: Spontaneous
  Country: US (occurrence: US)
  Receive Date: 20210106
  Receipt Date: 20210106
  Transmission Date: 20210419
  Serious: No
  Sender: FDA-Public Use
  Company Number: US-SA-2020SA376286

PATIENT

DRUGS (1)
  1. DUPIXENT [Suspect]
     Active Substance: DUPILUMAB
     Indication: DERMATITIS ATOPIC
     Dosage: 200 MG, QOW
     Route: 058
     Dates: start: 20201118

REACTIONS (6)
  - Oral herpes [Unknown]
  - Lymphadenopathy [Unknown]
  - Pruritus [Unknown]
  - Eye disorder [Unknown]
  - Incorrect dose administered [Unknown]
  - Swelling [Unknown]

NARRATIVE: CASE EVENT DATE: 2020
